FAERS Safety Report 6349514-8 (Version None)
Quarter: 2009Q3

REPORT INFORMATION
  Report Type: 
  Country: None (occurrence: None)
  Receive Date: 20090911
  Receipt Date: 20090831
  Transmission Date: 20100115
  Serious: Yes (Other)
  Sender: FDA-Public Use
  Company Number: US-PFIZER INC-2009262102

PATIENT
  Sex: Female
  Weight: 44 kg

DRUGS (8)
  1. OXAPROZIN POTASSIUM AND OXAPROZIN [Suspect]
     Dosage: UNK
     Dates: start: 20080108
  2. NAPROXEN AND NAPROXEN SODIUM [Suspect]
  3. ETANERCEPT [Suspect]
     Indication: JUVENILE ARTHRITIS
     Dosage: 15 MG, 2 IN 1 WEEK
     Route: 058
     Dates: start: 20021201
  4. MELOXICAM [Concomitant]
     Dosage: UNK
     Dates: end: 20080130
  5. ESOMEPRAZOLE MAGNESIUM [Concomitant]
  6. CETIRIZINE [Concomitant]
  7. MONTELUKAST [Concomitant]
  8. MOMETASONE FUROATE [Concomitant]

REACTIONS (5)
  - AMNESIA [None]
  - GASTRIC ULCER [None]
  - GASTRITIS [None]
  - INJECTION SITE IRRITATION [None]
  - LEARNING DISORDER [None]
